FAERS Safety Report 15524379 (Version 2)
Quarter: 2019Q4

REPORT INFORMATION
  Report Type: Report from Study
  Country: US (occurrence: US)
  Receive Date: 20181018
  Receipt Date: 20191007
  Transmission Date: 20200122
  Serious: Yes (Other)
  Sender: FDA-Public Use
  Company Number: US-ROCHE-2064297

PATIENT
  Age: 47 Year
  Sex: Female
  Weight: 89.09 kg

DRUGS (3)
  1. ATEZOLIZUMAB. [Suspect]
     Active Substance: ATEZOLIZUMAB
     Indication: TRIPLE NEGATIVE BREAST CANCER
     Dosage: DATE OF LAST ADMINISTERED DOSE 19/DEC/2017?09/JAN/2018 LAST ADMINISTERED DOSE?ON 22/MAY/2018, SHE RE
     Route: 042
     Dates: start: 20171219
  2. PACLITAXEL. [Suspect]
     Active Substance: PACLITAXEL
     Indication: TRIPLE NEGATIVE BREAST CANCER
     Dosage: DATE OF LAST ADMINISTERED DOSE 26/DEC/2017?AUC5?09/JAN/2018 LAST ADMINISTERED DOSE?ON 22/MAY/2018, S
     Route: 042
     Dates: start: 20171219
  3. CARBOPLATIN. [Suspect]
     Active Substance: CARBOPLATIN
     Indication: TRIPLE NEGATIVE BREAST CANCER
     Dosage: DATE OF LAST ADMINISTERED DOSE 26/DEC/2017?AUC5?09/JAN/2018 LAST ADMINISTERED DOSE?ON 22/MAY/2018, S
     Route: 042
     Dates: start: 20171219

REACTIONS (3)
  - Anaemia [Not Recovered/Not Resolved]
  - Gastrooesophageal reflux disease [Unknown]
  - Neutrophil count decreased [Not Recovered/Not Resolved]

NARRATIVE: CASE EVENT DATE: 20180103
